FAERS Safety Report 6139244-X (Version None)
Quarter: 2009Q2

REPORT INFORMATION
  Report Type: 
  Country: None (occurrence: None)
  Receive Date: 20090401
  Receipt Date: 20090323
  Transmission Date: 20091009
  Serious: Yes (Other)
  Sender: FDA-Public Use
  Company Number: US-BIOGENIDEC-2009BI006824

PATIENT
  Sex: Female

DRUGS (2)
  1. AVONEX [Suspect]
     Indication: MULTIPLE SCLEROSIS
     Route: 030
     Dates: start: 20020101
  2. AVONEX [Suspect]
     Route: 030

REACTIONS (5)
  - CHEST PAIN [None]
  - HAND FRACTURE [None]
  - HEART RATE IRREGULAR [None]
  - NASOPHARYNGITIS [None]
  - VENTRICULAR TACHYCARDIA [None]
